FAERS Safety Report 20113402 (Version 1)
Quarter: 2021Q4

REPORT INFORMATION
  Report Type: Spontaneous
  Country: IR (occurrence: IR)
  Receive Date: 20211125
  Receipt Date: 20211125
  Transmission Date: 20220303
  Serious: Yes (Other)
  Sender: FDA-Public Use
  Company Number: IR-GLAXOSMITHKLINE-IR2021GSK238020

PATIENT
  Age: 35 Year
  Sex: Female

DRUGS (8)
  1. MUPIROCIN [Suspect]
     Active Substance: MUPIROCIN
     Indication: Rash erythematous
     Dosage: UNK
  2. MUPIROCIN [Suspect]
     Active Substance: MUPIROCIN
     Indication: Rash pruritic
  3. PREDNISOLONE [Suspect]
     Active Substance: PREDNISOLONE
     Indication: Pustular psoriasis
     Dosage: 30 MG
  4. CLOXACILLIN [Suspect]
     Active Substance: CLOXACILLIN
     Indication: Rash erythematous
     Dosage: UNK
  5. CLOXACILLIN [Suspect]
     Active Substance: CLOXACILLIN
     Indication: Rash pruritic
  6. HYDROCORTISONE [Suspect]
     Active Substance: HYDROCORTISONE
     Indication: Rash erythematous
     Dosage: UNK
  7. HYDROCORTISONE [Suspect]
     Active Substance: HYDROCORTISONE
     Indication: Rash pruritic
  8. METHOTREXATE [Suspect]
     Active Substance: METHOTREXATE
     Indication: Pustular psoriasis
     Dosage: UNK

REACTIONS (3)
  - Abortion spontaneous [Unknown]
  - Vaginal haemorrhage [Unknown]
  - Exposure during pregnancy [Unknown]
